FAERS Safety Report 7681428-3 (Version None)
Quarter: 2011Q3

REPORT INFORMATION
  Report Type: 
  Country: None (occurrence: None)
  Receive Date: 20110812
  Receipt Date: 20110805
  Transmission Date: 20111222
  Serious: Yes (Death, Life-Threatening, Hospitalization, Disabling, Other)
  Sender: FDA-Public Use
  Company Number: SG-CELGENEUS-141-21880-11072107

PATIENT
  Age: 46 Year
  Sex: Male

DRUGS (3)
  1. REVLIMID [Suspect]
     Indication: MULTIPLE MYELOMA
     Dosage: 15 MILLIGRAM
     Route: 048
     Dates: start: 20110503, end: 20110516
  2. VELCADE [Concomitant]
     Route: 065
     Dates: start: 20110503
  3. DEXAMETHASONE [Concomitant]
     Route: 065
     Dates: start: 20110503

REACTIONS (4)
  - MULTIPLE MYELOMA [None]
  - VITH NERVE PARALYSIS [None]
  - PAIN IN EXTREMITY [None]
  - PANCYTOPENIA [None]
